FAERS Safety Report 6907723-0 (Version None)
Quarter: 2010Q3

REPORT INFORMATION
  Report Type: 
  Country: None (occurrence: None)
  Receive Date: 20100709
  Receipt Date: 20090702
  Transmission Date: 20110219
  Serious: Yes (Hospitalization)
  Sender: FDA-Public Use
  Company Number: 2009070004

PATIENT
  Sex: Female

DRUGS (2)
  1. SOMA [Suspect]
  2. OXYCONTIN [Suspect]

REACTIONS (1)
  - OVERDOSE [None]
